FAERS Safety Report 4377136-7 (Version None)
Quarter: 2004Q2

REPORT INFORMATION
  Report Type: 
  Country: None (occurrence: None)
  Receive Date: 20040608
  Receipt Date: 20040602
  Transmission Date: 20050107
  Serious: Yes (Hospitalization)
  Sender: FDA-Public Use
  Company Number: WAES 0405DEU00193

PATIENT
  Age: 65 Year
  Sex: Female

DRUGS (1)
  1. HYZAAR [Suspect]
     Indication: ESSENTIAL HYPERTENSION
     Dosage: PO
     Route: 048
     Dates: start: 20040224, end: 20040101

REACTIONS (1)
  - GASTRIC ULCER [None]
